FAERS Safety Report 6420374-X (Version None)
Quarter: 2009Q4

REPORT INFORMATION
  Report Type: 
  Country: None (occurrence: None)
  Receive Date: 20091021
  Receipt Date: 20090601
  Transmission Date: 20100525
  Serious: No
  Sender: FDA-Public Use
  Company Number: ALL1-2009-01506

PATIENT
  Age: 7 Year
  Sex: Male
  Weight: 30.8 kg

DRUGS (1)
  1. VYVANSE [Suspect]
     Indication: ATTENTION DEFICIT/HYPERACTIVITY DISORDER
     Dosage: 30 MG, 1X/DAY;QD, ORAL
     Route: 048
     Dates: start: 20070101

REACTIONS (7)
  - AGITATION [None]
  - CONDITION AGGRAVATED [None]
  - DECREASED APPETITE [None]
  - GROWTH RETARDATION [None]
  - IRRITABILITY [None]
  - NEGATIVISM [None]
  - PSYCHOMOTOR HYPERACTIVITY [None]
